FAERS Safety Report 22144327 (Version 1)
Quarter: 2023Q1

REPORT INFORMATION
  Report Type: Spontaneous
  Country: JP (occurrence: JP)
  Receive Date: 20230328
  Receipt Date: 20230328
  Transmission Date: 20230417
  Serious: No
  Sender: FDA-Public Use
  Company Number: JP-MSD-M2023-11067

PATIENT

DRUGS (1)
  1. LAGEVRIO [Suspect]
     Active Substance: MOLNUPIRAVIR
     Dosage: UNK UNK, BID
     Route: 003

REACTIONS (3)
  - Paraesthesia [Unknown]
  - Occupational exposure to product [Unknown]
  - Exposure via skin contact [Unknown]
